FAERS Safety Report 6236212-4 (Version None)
Quarter: 2009Q2

REPORT INFORMATION
  Report Type: 
  Country: None (occurrence: None)
  Receive Date: 20090619
  Receipt Date: 20090608
  Transmission Date: 20091009
  Serious: Yes (Hospitalization)
  Sender: FDA-Public Use
  Company Number: FR-ELI_LILLY_AND_COMPANY-FR200903004622

PATIENT
  Age: 76 Year
  Sex: Female

DRUGS (10)
  1. FORTEO [Suspect]
     Indication: OSTEOPOROSIS
     Dosage: 20 UG, DAILY (1/D)
     Route: 065
     Dates: start: 20080319, end: 20090202
  2. FORTEO [Suspect]
     Dosage: UNK, UNKNOWN
     Route: 065
     Dates: start: 20090303
  3. PROZAC [Concomitant]
     Dosage: UNK, UNKNOWN
     Route: 065
  4. ATACAND [Concomitant]
     Dosage: UNK, UNKNOWN
     Route: 065
  5. HEXAQUINE [Concomitant]
     Dosage: UNK, UNKNOWN
     Route: 065
  6. CERIS [Concomitant]
     Dosage: UNK, UNKNOWN
     Route: 065
  7. LEXOMIL [Concomitant]
     Dosage: UNK, UNKNOWN
     Route: 065
  8. NEXIUM [Concomitant]
     Dosage: UNK, UNKNOWN
     Route: 065
  9. SKENAN [Concomitant]
     Dosage: 10 MG, UNKNOWN
     Route: 065
  10. PARACETAMOL [Concomitant]
     Dosage: UNK, UNKNOWN
     Route: 065

REACTIONS (7)
  - FALL [None]
  - HEPATIC FUNCTION ABNORMAL [None]
  - HIP FRACTURE [None]
  - HYPERTHERMIA [None]
  - SMALL INTESTINE CARCINOMA [None]
  - VOMITING [None]
  - WEIGHT DECREASED [None]
